FAERS Safety Report 5187458-8 (Version None)
Quarter: 2006Q4

REPORT INFORMATION
  Report Type: 
  Country: None (occurrence: None)
  Receive Date: 20061213
  Receipt Date: 20061201
  Transmission Date: 20070319
  Serious: Yes (Hospitalization, Other)
  Sender: FDA-Public Use
  Company Number: US-2006-037541

PATIENT
  Age: 53 Year
  Sex: Female
  Weight: 120 kg

DRUGS (3)
  1. MAGNEVIST [Suspect]
     Indication: NUCLEAR MAGNETIC RESONANCE IMAGING
     Dosage: 20 ML, 1
     Dates: start: 20061201, end: 20061201
  2. ASPIRIN [Concomitant]
  3. ATENOLOL [Concomitant]

REACTIONS (6)
  - ANAPHYLACTOID REACTION [None]
  - APNOEA [None]
  - CONVULSION [None]
  - COUGH [None]
  - LOSS OF CONSCIOUSNESS [None]
  - POST PROCEDURAL COMPLICATION [None]
